FAERS Safety Report 17366023 (Version 2)
Quarter: 2020Q1

REPORT INFORMATION
  Report Type: Spontaneous
  Country: US (occurrence: US)
  Receive Date: 20200204
  Receipt Date: 20200208
  Transmission Date: 20200409
  Serious: Yes (Hospitalization)
  Sender: FDA-Public Use
  Company Number: US-UNITED THERAPEUTICS-UNT-2020-001403

PATIENT
  Age: 51 Year
  Sex: Female
  Weight: 81.18 kg

DRUGS (2)
  1. REMODULIN [Suspect]
     Active Substance: TREPROSTINIL
     Dosage: 0.106 ?G/KG, CONTINUING
     Route: 041
     Dates: start: 20131126
  2. REMODULIN [Suspect]
     Active Substance: TREPROSTINIL
     Indication: PULMONARY ARTERIAL HYPERTENSION
     Dosage: 0.11 ?G/KG, CONTINUING
     Route: 041
     Dates: start: 20130131

REACTIONS (1)
  - Heart rate increased [Unknown]

NARRATIVE: CASE EVENT DATE: 20200114
